FAERS Safety Report 14683825 (Version 1)
Quarter: 2018Q1

REPORT INFORMATION
  Report Type: Spontaneous
  Country: FR (occurrence: FR)
  Receive Date: 20180327
  Receipt Date: 20180327
  Transmission Date: 20180509
  Serious: Yes (Other)
  Sender: FDA-Public Use
  Company Number: FR-MERCK KGAA-2044600

PATIENT
  Age: 53 Year
  Sex: Female

DRUGS (1)
  1. NOVOTHYROX [Suspect]
     Active Substance: LEVOTHYROXINE SODIUM
     Indication: PRODUCT USED FOR UNKNOWN INDICATION
     Dates: start: 20170502, end: 20171012

REACTIONS (26)
  - Sleep disorder [Recovered/Resolved]
  - Disturbance in attention [Recovered/Resolved]
  - Impatience [Recovered/Resolved]
  - Anger [Recovered/Resolved]
  - Arthralgia [Recovered/Resolved]
  - Social avoidant behaviour [Recovered/Resolved]
  - Emotional distress [Recovered/Resolved]
  - Decreased appetite [Recovered/Resolved]
  - Dysphagia [Recovered/Resolved]
  - Insomnia [Recovered/Resolved]
  - Self esteem decreased [Recovered/Resolved]
  - Agitation [Recovered/Resolved]
  - Headache [Recovered/Resolved]
  - Vomiting [Recovered/Resolved]
  - Mobility decreased [Recovered/Resolved]
  - Migraine [Recovered/Resolved]
  - Aggression [Recovered/Resolved]
  - Asthenia [Recovered/Resolved]
  - Personal relationship issue [Recovered/Resolved]
  - Stress [Recovered/Resolved]
  - Loss of consciousness [Recovered/Resolved]
  - Irritability [Recovered/Resolved]
  - Nausea [Recovered/Resolved]
  - Mood swings [Recovered/Resolved]
  - Fatigue [Recovered/Resolved]
  - Loss of personal independence in daily activities [Recovered/Resolved]

NARRATIVE: CASE EVENT DATE: 2017
